FAERS Safety Report 6089463-6 (Version None)
Quarter: 2009Q1

REPORT INFORMATION
  Report Type: 
  Country: None (occurrence: None)
  Receive Date: 20090224
  Receipt Date: 20090212
  Transmission Date: 20090719
  Serious: Yes (Other)
  Sender: FDA-Public Use
  Company Number: CA-PFIZER INC-2009171468

PATIENT

DRUGS (5)
  1. LYRICA [Suspect]
     Indication: MULTIPLE SCLEROSIS
     Dosage: 300 MG, 2X/DAY
     Route: 048
     Dates: start: 20080101
  2. LYRICA [Suspect]
     Dosage: 150 MG, 2X/DAY
     Route: 048
     Dates: start: 20080101
  3. MORPHINE SULFATE [Concomitant]
     Dosage: 30 MG, 3X/DAY
  4. MORPHINE SULFATE [Concomitant]
     Dosage: 15 MG, 3X/DAY
  5. DIAZEPAM [Concomitant]
     Dosage: 10 MG, 3X/DAY

REACTIONS (5)
  - DROOLING [None]
  - DYSARTHRIA [None]
  - LOSS OF CONSCIOUSNESS [None]
  - MEMORY IMPAIRMENT [None]
  - OVERDOSE [None]
